FAERS Safety Report 20622480 (Version 1)
Quarter: 2022Q1

REPORT INFORMATION
  Report Type: Spontaneous
  Country: QA (occurrence: QA)
  Receive Date: 20220322
  Receipt Date: 20220322
  Transmission Date: 20220424
  Serious: Yes (Other)
  Sender: FDA-Public Use
  Company Number: QA-NOVARTISPH-NVSC2022QA061832

PATIENT
  Age: 39 Year
  Sex: Female

DRUGS (12)
  1. PIPERACILLIN SODIUM\TAZOBACTAM SODIUM [Suspect]
     Active Substance: PIPERACILLIN SODIUM\TAZOBACTAM SODIUM
     Indication: COVID-19 pneumonia
     Dosage: UNK
     Route: 042
     Dates: start: 2020, end: 2020
  2. AZITHROMYCIN [Suspect]
     Active Substance: AZITHROMYCIN
     Indication: COVID-19 pneumonia
     Dosage: 500 MG
     Route: 065
     Dates: start: 2020, end: 2020
  3. TOCILIZUMAB [Suspect]
     Active Substance: TOCILIZUMAB
     Indication: COVID-19 pneumonia
     Dosage: 400 MG
     Route: 065
     Dates: start: 2020, end: 2020
  4. HYDROXYCHLOROQUINE [Suspect]
     Active Substance: HYDROXYCHLOROQUINE
     Indication: COVID-19 pneumonia
     Dosage: 400 MG, QD
     Route: 065
     Dates: start: 2020, end: 2020
  5. LOPINAVIR\RITONAVIR [Suspect]
     Active Substance: LOPINAVIR\RITONAVIR
     Indication: COVID-19 pneumonia
     Dosage: 400/100 MG, QD
     Route: 065
     Dates: start: 2020, end: 2020
  6. OSELTAMIVIR [Suspect]
     Active Substance: OSELTAMIVIR
     Indication: COVID-19 pneumonia
     Dosage: 150 MG, BID
     Route: 065
     Dates: start: 2020, end: 2020
  7. METHYLPREDNISOLONE [Suspect]
     Active Substance: METHYLPREDNISOLONE
     Indication: COVID-19 pneumonia
     Dosage: 40 MG, Q8H
     Route: 042
     Dates: start: 2020, end: 2020
  8. MEROPENEM [Suspect]
     Active Substance: MEROPENEM
     Indication: COVID-19 pneumonia
     Dosage: 1 G, Q8H
     Route: 065
     Dates: start: 2020, end: 2020
  9. AMPICILLIN AND SULBACTAM [Suspect]
     Active Substance: AMPICILLIN SODIUM\SULBACTAM SODIUM
     Indication: COVID-19 pneumonia
     Dosage: UNK
     Route: 065
     Dates: start: 2020
  10. SULFAMETHOXAZOLE AND TRIMETHOPRIM [Suspect]
     Active Substance: SULFAMETHOXAZOLE\TRIMETHOPRIM
     Indication: COVID-19 pneumonia
     Dosage: UNK
     Route: 065
     Dates: start: 2020
  11. HYDROCORTISONE [Suspect]
     Active Substance: HYDROCORTISONE
     Indication: COVID-19 pneumonia
     Dosage: UNK
     Route: 065
     Dates: start: 2020
  12. BETAMETHASONE [Suspect]
     Active Substance: BETAMETHASONE
     Indication: COVID-19 pneumonia
     Dosage: UNK
     Route: 065
     Dates: start: 2020

REACTIONS (3)
  - Foetal death [Unknown]
  - Maternal exposure during pregnancy [Unknown]
  - Product use in unapproved indication [Unknown]
